FAERS Safety Report 8851226 (Version 2)
Quarter: 2014Q1

REPORT INFORMATION
  Report Type: Spontaneous
  Country: US (occurrence: US)
  Receive Date: 20121019
  Receipt Date: 20140124
  Transmission Date: 20141002
  Serious: Yes (Other)
  Sender: FDA-Public Use
  Company Number: US-AMGEN-USASP2012066126

PATIENT
  Age: 83 Year
  Sex: Female

DRUGS (4)
  1. PROLIA [Suspect]
     Indication: PRODUCT USED FOR UNKNOWN INDICATION
     Dosage: 60 MG, Q6MO
     Route: 065
     Dates: start: 201207
  2. CARDIZEM                           /00489701/ [Concomitant]
     Dosage: UNK
  3. ASPIRIN [Concomitant]
     Dosage: UNK UNK, QWK
  4. DEVIL^S CLAW                       /01064501/ [Concomitant]
     Dosage: UNK

REACTIONS (19)
  - Haemorrhage [Unknown]
  - Laceration [Unknown]
  - Thyroid disorder [Unknown]
  - Back pain [Not Recovered/Not Resolved]
  - Rash [Unknown]
  - Paraesthesia [Not Recovered/Not Resolved]
  - Hypoaesthesia [Unknown]
  - Chest discomfort [Unknown]
  - Urticaria [Unknown]
  - Fall [Unknown]
  - Hepatic enzyme increased [Not Recovered/Not Resolved]
  - Pruritus [Unknown]
  - Paraesthesia oral [Not Recovered/Not Resolved]
  - Hypoaesthesia oral [Unknown]
  - Gait disturbance [Unknown]
  - Balance disorder [Unknown]
  - Dry skin [Unknown]
  - Skin discolouration [Unknown]
  - Skin papilloma [Unknown]
